FAERS Safety Report 23935654 (Version 1)
Quarter: 2024Q2

REPORT INFORMATION
  Report Type: Spontaneous
  Country: US (occurrence: US)
  Receive Date: 20240604
  Receipt Date: 20240604
  Transmission Date: 20240716
  Serious: No
  Sender: FDA-Public Use
  Company Number: US-TEVA-VS-3201554

PATIENT
  Sex: Female

DRUGS (1)
  1. ROPINIROLE [Suspect]
     Active Substance: ROPINIROLE
     Indication: Restless legs syndrome
     Dosage: PATIENT TAKE ONE TABLETS PER DAY
     Route: 065
     Dates: start: 20240515, end: 20240521

REACTIONS (2)
  - Paraesthesia [Unknown]
  - Off label use [Unknown]
